FAERS Safety Report 7732563-2 (Version None)
Quarter: 2011Q3

REPORT INFORMATION
  Report Type: 
  Country: None (occurrence: None)
  Receive Date: 20110906
  Receipt Date: 20110409
  Transmission Date: 20111222
  Serious: No
  Sender: FDA-Public Use
  Company Number: US-BAYER-2011-031194

PATIENT
  Age: 50 Year
  Sex: Female

DRUGS (1)
  1. MIRENA [Suspect]
     Indication: MENORRHAGIA
     Dosage: 20 ?G/D, UNK
     Route: 015
     Dates: start: 20110407

REACTIONS (2)
  - MEDICAL DEVICE COMPLICATION [None]
  - ABDOMINAL PAIN [None]
